FAERS Safety Report 9679364 (Version 1)
Quarter: 2013Q4

REPORT INFORMATION
  Report Type: Spontaneous
  Country: US (occurrence: US)
  Receive Date: 20131109
  Receipt Date: 20131109
  Transmission Date: 20140711
  Serious: No
  Sender: FDA-Public Use
  Company Number: US-SANOFI-AVENTIS-2013SA026312

PATIENT
  Age: 78 Year
  Sex: Male
  Weight: 68.04 kg

DRUGS (1)
  1. ALLEGRA-D [Suspect]
     Indication: RESPIRATORY TRACT CONGESTION
     Route: 048
     Dates: start: 20130310, end: 20130311

REACTIONS (1)
  - Insomnia [Recovered/Resolved]
